FAERS Safety Report 16198794 (Version 3)
Quarter: 2019Q3

REPORT INFORMATION
  Report Type: Spontaneous
  Country: US (occurrence: US)
  Receive Date: 20190415
  Receipt Date: 20190705
  Transmission Date: 20191004
  Serious: Yes (Other)
  Sender: FDA-Public Use
  Company Number: US-PFIZER INC-2019146552

PATIENT
  Age: 64 Year
  Sex: Female
  Weight: 57.61 kg

DRUGS (3)
  1. CORTEF [HYDROCORTISONE] [Concomitant]
     Indication: ADRENAL DISORDER
     Dosage: 5 MG, UNK(5MG TABLET 5 TIMES A DAY BY MOUTH)
     Route: 048
  2. CYTOMEL [Suspect]
     Active Substance: LIOTHYRONINE SODIUM
     Indication: HYPOTHYROIDISM
     Dosage: 25 UG, 3X/DAY
     Route: 048
  3. LIOTHYRONINE SODIUM. [Suspect]
     Active Substance: LIOTHYRONINE SODIUM
     Indication: HYPOTHYROIDISM
     Dosage: UNK

REACTIONS (4)
  - Drug ineffective [Unknown]
  - Therapeutic product effect decreased [Not Recovered/Not Resolved]
  - Feeling abnormal [Unknown]
  - Loss of consciousness [Unknown]

NARRATIVE: CASE EVENT DATE: 2019
